FAERS Safety Report 21374308 (Version 9)
Quarter: 2024Q2

REPORT INFORMATION
  Report Type: Report from Study
  Country: JP (occurrence: JP)
  Receive Date: 20220926
  Receipt Date: 20240528
  Transmission Date: 20240716
  Serious: Yes (Life-Threatening, Other)
  Sender: FDA-Public Use
  Company Number: JP-ARGENX-2022-ARGX-JP001885

PATIENT

DRUGS (9)
  1. VYVGART [Suspect]
     Active Substance: EFGARTIGIMOD ALFA-FCAB
     Indication: Myasthenia gravis
     Dosage: 760 MG
     Route: 042
     Dates: start: 20220802, end: 20220802
  2. VYVGART [Suspect]
     Active Substance: EFGARTIGIMOD ALFA-FCAB
     Dosage: 780 MG
     Route: 042
     Dates: start: 20220809, end: 20220823
  3. VYVGART [Suspect]
     Active Substance: EFGARTIGIMOD ALFA-FCAB
     Dosage: UNK
     Route: 042
     Dates: start: 20230623
  4. VYVGART [Suspect]
     Active Substance: EFGARTIGIMOD ALFA-FCAB
     Dosage: 400 MG
     Route: 042
     Dates: start: 20231107, end: 20231107
  5. VYVGART [Suspect]
     Active Substance: EFGARTIGIMOD ALFA-FCAB
     Dosage: UNK
     Route: 042
     Dates: end: 202404
  6. PROGRAF [Concomitant]
     Active Substance: TACROLIMUS
     Indication: Myasthenia gravis
     Dosage: 3 MG
     Route: 048
     Dates: start: 20200722, end: 20221011
  7. PREDNISOLONE [Concomitant]
     Active Substance: PREDNISOLONE
     Indication: Myasthenia gravis
     Dosage: 15 MG
     Route: 048
     Dates: start: 20220705
  8. MESTINON [Concomitant]
     Active Substance: PYRIDOSTIGMINE BROMIDE
     Indication: Myasthenia gravis
     Dosage: 180 MG
     Route: 048
     Dates: start: 20220405
  9. ROSUVASTATIN [Concomitant]
     Active Substance: ROSUVASTATIN
     Indication: Hypercholesterolaemia
     Dosage: 2.5 MG
     Route: 048
     Dates: start: 20201027, end: 20221011

REACTIONS (6)
  - Myasthenia gravis [Recovering/Resolving]
  - Myasthenia gravis crisis [Recovering/Resolving]
  - Myasthenia gravis crisis [Recovering/Resolving]
  - Pneumonia aspiration [Recovering/Resolving]
  - Underdose [Unknown]
  - Therapeutic product effect incomplete [Unknown]

NARRATIVE: CASE EVENT DATE: 20220919
